FAERS Safety Report 8407790-1 (Version None)
Quarter: 2012Q2

REPORT INFORMATION
  Report Type: 
  Country: None (occurrence: None)
  Receive Date: 20120604
  Receipt Date: 20120328
  Transmission Date: 20120825
  Serious: Yes (Hospitalization)
  Sender: FDA-Public Use
  Company Number: FR-VIIV HEALTHCARE LIMITED-B0792149A

PATIENT
  Sex: Male
  Weight: 56 kg

DRUGS (2)
  1. SUSTIVA [Suspect]
     Indication: HIV INFECTION
     Dosage: 600MG UNKNOWN
     Route: 048
     Dates: start: 20090101, end: 20120328
  2. ABACAVIR SULFATE/LAMIVUDINE [Suspect]
     Indication: HIV INFECTION
     Route: 048
     Dates: start: 20090101, end: 20120328

REACTIONS (14)
  - ABDOMINAL PAIN UPPER [None]
  - CONSTIPATION [None]
  - BARRETT'S OESOPHAGUS [None]
  - FLATULENCE [None]
  - PANCREATITIS CHRONIC [None]
  - OESOPHAGEAL PAPILLOMA [None]
  - ILL-DEFINED DISORDER [None]
  - DYSPEPSIA [None]
  - HUNGER [None]
  - DIARRHOEA [None]
  - GASTRITIS [None]
  - GASTROOESOPHAGEAL REFLUX DISEASE [None]
  - MUCOUS STOOLS [None]
  - RECTAL TENESMUS [None]
